FAERS Safety Report 6258890-6 (Version None)
Quarter: 2009Q3

REPORT INFORMATION
  Report Type: 
  Country: None (occurrence: None)
  Receive Date: 20090707
  Receipt Date: 20090629
  Transmission Date: 20100115
  Serious: Yes (Other)
  Sender: FDA-Public Use
  Company Number: US-GILEAD-2009-0022829

PATIENT
  Age: 50 Year
  Sex: Female

DRUGS (2)
  1. LETAIRIS [Suspect]
     Indication: PULMONARY ARTERIAL HYPERTENSION
  2. VERAPAMIL [Concomitant]

REACTIONS (2)
  - OEDEMA [None]
  - WHITE BLOOD CELL COUNT DECREASED [None]
